FAERS Safety Report 24294231 (Version 1)
Quarter: 2024Q3

REPORT INFORMATION
  Report Type: Spontaneous
  Country: US (occurrence: US)
  Receive Date: 20240906
  Receipt Date: 20240906
  Transmission Date: 20241016
  Serious: No
  Sender: DOMPE FARMACEUTICI
  Company Number: US-FARMAPROD-202406-2116

PATIENT
  Sex: Female
  Weight: 54.88 kg

DRUGS (27)
  1. OXERVATE [Suspect]
     Active Substance: CENEGERMIN-BKBJ
     Indication: Neurotrophic keratopathy
     Route: 047
     Dates: start: 20240418
  2. OXERVATE [Suspect]
     Active Substance: CENEGERMIN-BKBJ
  3. LEVOCETIRIZINE DIHYDROCHLORIDE [Concomitant]
     Active Substance: LEVOCETIRIZINE DIHYDROCHLORIDE
  4. TYLENOL [Concomitant]
     Active Substance: ACETAMINOPHEN
  5. DILAUDID [Concomitant]
     Active Substance: HYDROMORPHONE HYDROCHLORIDE
     Dosage: MG/ML VIAL
  6. LANTUS [Concomitant]
     Active Substance: INSULIN GLARGINE
     Dosage: /ML VIAL
  7. GAS RELIEF [Concomitant]
     Active Substance: DIMETHICONE
  8. MAGNESIUM [Concomitant]
     Active Substance: MAGNESIUM
  9. NOVOLOG [Concomitant]
     Active Substance: INSULIN ASPART
  10. VITAMINS [Concomitant]
     Active Substance: VITAMINS
     Dosage: 9 MG/15 ML LIQUID
  11. STOOL SOFTENER (DOCUSATE) [Concomitant]
     Active Substance: DOCUSATE
  12. BIOTIN [Concomitant]
     Active Substance: BIOTIN
  13. ONDANSETRON [Concomitant]
     Active Substance: ONDANSETRON
  14. DULOXETINE HYDROCHLORIDE [Concomitant]
     Active Substance: DULOXETINE HYDROCHLORIDE
  15. CALCIUM 500-VIT D3 [Concomitant]
  16. LUBIPROSTONE [Concomitant]
     Active Substance: LUBIPROSTONE
  17. HYDROXYZINE HYDROCHLORIDE [Concomitant]
     Active Substance: HYDROXYZINE HYDROCHLORIDE
     Dosage: 10 MG/5 ML
  18. ZIPRASIDONE HYDROCHLORIDE [Concomitant]
     Active Substance: ZIPRASIDONE HYDROCHLORIDE
  19. CYCLOSPORINE [Concomitant]
     Active Substance: CYCLOSPORINE
  20. LANTUS SOLOSTAR [Concomitant]
     Active Substance: INSULIN GLARGINE
  21. METOPROLOL TARTRATE [Concomitant]
     Active Substance: METOPROLOL TARTRATE
  22. DIPHENHYDRAMINE HYDROCHLORIDE [Concomitant]
     Active Substance: DIPHENHYDRAMINE HYDROCHLORIDE
  23. DOCUSATE SODIUM [Concomitant]
     Active Substance: DOCUSATE SODIUM
  24. EZETIMIBE [Concomitant]
     Active Substance: EZETIMIBE
  25. OMEPRAZOLE [Concomitant]
     Active Substance: OMEPRAZOLE
  26. LYRICA [Concomitant]
     Active Substance: PREGABALIN
  27. OMEGA-3-ACID ETHYL ESTERS [Concomitant]
     Active Substance: OMEGA-3-ACID ETHYL ESTERS

REACTIONS (2)
  - Eye pain [Not Recovered/Not Resolved]
  - Eyelid pain [Unknown]
